FAERS Safety Report 16833445 (Version 1)
Quarter: 2019Q3

REPORT INFORMATION
  Report Type: Spontaneous
  Country: US (occurrence: US)
  Receive Date: 20190920
  Receipt Date: 20190920
  Transmission Date: 20191005
  Serious: No
  Sender: FDA-Public Use
  Company Number: US-AKRON, INC.-2074719

PATIENT

DRUGS (1)
  1. AKTEN [Suspect]
     Active Substance: LIDOCAINE HYDROCHLORIDE
     Route: 047

REACTIONS (2)
  - Corneal oedema [None]
  - Corneal opacity [None]
